FAERS Safety Report 18963569 (Version 1)
Quarter: 2021Q1

REPORT INFORMATION
  Report Type: Spontaneous
  Country: JP (occurrence: JP)
  Receive Date: 20210303
  Receipt Date: 20210303
  Transmission Date: 20210420
  Serious: Yes (Hospitalization, Other)
  Sender: FDA-Public Use
  Company Number: JP-PFIZER INC-K200901565

PATIENT
  Age: 49 Year
  Sex: Male

DRUGS (2)
  1. PENICILLIN G [BENZYLPENICILLIN] [Suspect]
     Active Substance: PENICILLIN G
     Indication: ENDOCARDITIS
     Dosage: 4000000 IU, EVERY 4 HRS (4 MILLION UNITS EVERY 4 HOURS)
  2. GENTAMICIN SULFATE. [Concomitant]
     Active Substance: GENTAMICIN SULFATE
     Dosage: 180 MG, 4X/DAY (180 MG EVERY 8 HOURS)

REACTIONS (9)
  - Hydronephrosis [Recovering/Resolving]
  - Acute kidney injury [Recovering/Resolving]
  - Back pain [Recovering/Resolving]
  - Eosinophilia [Recovering/Resolving]
  - Cystitis haemorrhagic [Recovering/Resolving]
  - Hydroureter [Recovering/Resolving]
  - Dysuria [Recovering/Resolving]
  - Pollakiuria [Recovering/Resolving]
  - Haematuria [Recovering/Resolving]
